FAERS Safety Report 5348024-4 (Version None)
Quarter: 2007Q2

REPORT INFORMATION
  Report Type: 
  Country: None (occurrence: None)
  Receive Date: 20070606
  Receipt Date: 20070530
  Transmission Date: 20071010
  Serious: Yes (Hospitalization)
  Sender: FDA-Public Use
  Company Number: US-BRISTOL-MYERS SQUIBB COMPANY-13791439

PATIENT
  Age: 39 Year
  Sex: Female

DRUGS (7)
  1. METFORMIN HCL [Suspect]
     Indication: DIABETES MELLITUS
     Dosage: 03-MAY-2007-ONGOING
     Route: 048
     Dates: start: 20060911, end: 20070501
  2. BLINDED: LIRAGLUTIDE [Suspect]
     Indication: DIABETES MELLITUS
     Dosage: 03-MAY-2007 TO ONGOING
     Dates: start: 20061030, end: 20070501
  3. AVANDIA [Suspect]
     Indication: DIABETES MELLITUS
     Dosage: 02-MAY-2007 TO 02-MAY-2007 2MG PER DAY, 03-MAY-2007 TO ONGOING  8 MG 2 PER 1 DAY.
     Dates: start: 20060911, end: 20070501
  4. BLINDED: PLACEBO [Suspect]
     Dates: start: 20061030, end: 20070501
  5. ASPIRIN [Concomitant]
  6. TYLENOL [Concomitant]
  7. PHENERGAN HCL [Concomitant]

REACTIONS (2)
  - ABDOMINAL DISTENSION [None]
  - CHEST PAIN [None]
